FAERS Safety Report 6905234-X (Version None)
Quarter: 2010Q3

REPORT INFORMATION
  Report Type: 
  Country: None (occurrence: None)
  Receive Date: 20100804
  Receipt Date: 20100722
  Transmission Date: 20110219
  Serious: Yes (Hospitalization)
  Sender: FDA-Public Use
  Company Number: US-ELI_LILLY_AND_COMPANY-US201007005891

PATIENT
  Sex: Female

DRUGS (1)
  1. EVISTA [Suspect]
     Dates: start: 20100615

REACTIONS (4)
  - ASTHENIA [None]
  - BLISTER [None]
  - FATIGUE [None]
  - OROPHARYNGEAL BLISTERING [None]
